FAERS Safety Report 14367561 (Version 2)
Quarter: 2018Q1

REPORT INFORMATION
  Report Type: Spontaneous
  Country: US (occurrence: US)
  Receive Date: 20180109
  Receipt Date: 20180201
  Transmission Date: 20180509
  Serious: No
  Sender: FDA-Public Use
  Company Number: US-GLAXOSMITHKLINE-US2018000326

PATIENT
  Sex: Male
  Weight: 143.76 kg

DRUGS (7)
  1. NUCALA [Suspect]
     Active Substance: MEPOLIZUMAB
     Indication: ASTHMA
     Dosage: 100 MG, CYC
     Route: 058
     Dates: start: 201702
  2. BUDESONIDE. [Concomitant]
     Active Substance: BUDESONIDE
  3. DULERA INHALER [Concomitant]
  4. PREDNISONE. [Concomitant]
     Active Substance: PREDNISONE
  5. MOTRIN [Suspect]
     Active Substance: IBUPROFEN
     Indication: ARTHRALGIA
     Dosage: 2 DF, U
  6. SINGULAIR [Concomitant]
     Active Substance: MONTELUKAST SODIUM
  7. MOTRIN [Suspect]
     Active Substance: IBUPROFEN
     Indication: OSTEOARTHRITIS
     Dosage: 1200 MG, UNK

REACTIONS (18)
  - Asthenia [Not Recovered/Not Resolved]
  - Anosmia [Recovered/Resolved]
  - Malaise [Unknown]
  - Sinus disorder [Not Recovered/Not Resolved]
  - Increased viscosity of bronchial secretion [Unknown]
  - Gait disturbance [Recovered/Resolved]
  - Arthralgia [Unknown]
  - Neuropathy peripheral [Not Recovered/Not Resolved]
  - Sputum increased [Unknown]
  - Asthma [Unknown]
  - Nasal congestion [Unknown]
  - Back pain [Recovered/Resolved]
  - Therapeutic response decreased [Not Recovered/Not Resolved]
  - Drug hypersensitivity [Not Recovered/Not Resolved]
  - Medication error [Unknown]
  - Osteoarthritis [Unknown]
  - Fatigue [Recovering/Resolving]
  - Dyspnoea [Recovered/Resolved]
